FAERS Safety Report 9944536 (Version 1)
Quarter: 2014Q1

REPORT INFORMATION
  Report Type: Report from Study
  Country: US (occurrence: US)
  Receive Date: 20140303
  Receipt Date: 20140303
  Transmission Date: 20141002
  Serious: No
  Sender: FDA-Public Use
  Company Number: US-ABBVIE-13P-163-1053283-00

PATIENT
  Age: 53 Year
  Sex: Female

DRUGS (10)
  1. HUMIRA [Suspect]
     Indication: RHEUMATOID ARTHRITIS
     Dates: start: 20100610
  2. METHOTREXATE [Concomitant]
     Indication: PRODUCT USED FOR UNKNOWN INDICATION
     Dosage: 4 PILLS EVERY WEEK
  3. FOLIC ACID [Concomitant]
     Indication: PRODUCT USED FOR UNKNOWN INDICATION
  4. VITAMIN D3 [Concomitant]
     Indication: PRODUCT USED FOR UNKNOWN INDICATION
     Dosage: 3 TO 4 TABS DAILY
  5. SINGULAIR [Concomitant]
     Indication: HYPERSENSITIVITY
     Dosage: 10MG EVERY HOUR OF SLEEP
  6. LORATADINE [Concomitant]
     Indication: HYPERSENSITIVITY
  7. FLUTICASON [Concomitant]
     Indication: HYPERSENSITIVITY
     Dosage: 2 SPRAYS, EACH NOSTRIL, TWICE DAILY
  8. PROAIR [Concomitant]
     Indication: ASTHMA
     Dosage: INHALER, 2 PUFFS, AS NEEDED
  9. GLIMEPIRIDE [Concomitant]
     Indication: PRODUCT USED FOR UNKNOWN INDICATION
     Dosage: 1-2MG THEN TO 4 MG IN DEC 2012
  10. DICYCLOMINE [Concomitant]
     Indication: PRODUCT USED FOR UNKNOWN INDICATION

REACTIONS (2)
  - Sleep apnoea syndrome [Unknown]
  - Weight decreased [Unknown]
